FAERS Safety Report 12869761 (Version 2)
Quarter: 2017Q1

REPORT INFORMATION
  Report Type: Report from Study
  Country: US (occurrence: US)
  Receive Date: 20161020
  Receipt Date: 20170124
  Transmission Date: 20170428
  Serious: No
  Sender: FDA-Public Use
  Company Number: US-AMGEN-USASL2016107828

PATIENT
  Age: 71 Year
  Sex: Female
  Weight: 96 kg

DRUGS (2)
  1. REPATHA [Suspect]
     Active Substance: EVOLOCUMAB
     Indication: HYPERLIPIDAEMIA
  2. REPATHA [Suspect]
     Active Substance: EVOLOCUMAB
     Indication: BLOOD CHOLESTEROL INCREASED
     Dosage: 140 MG/ML, Q2WK
     Route: 058
     Dates: start: 20151223, end: 20160728

REACTIONS (8)
  - Pruritus [Not Recovered/Not Resolved]
  - Drug effect incomplete [Unknown]
  - Dermatitis psoriasiform [Unknown]
  - Injection site papule [Unknown]
  - Papule [Not Recovered/Not Resolved]
  - Injection site erythema [Unknown]
  - Injection site pruritus [Not Recovered/Not Resolved]
  - Injection site rash [Unknown]

NARRATIVE: CASE EVENT DATE: 2016
